FAERS Safety Report 7030141-4 (Version None)
Quarter: 2010Q4

REPORT INFORMATION
  Report Type: 
  Country: None (occurrence: None)
  Receive Date: 20101006
  Receipt Date: 20100922
  Transmission Date: 20110411
  Serious: Yes (Death, Other)
  Sender: FDA-Public Use
  Company Number: GB-RANBAXY-2010R1-38221

PATIENT

DRUGS (3)
  1. AMITRIPTYLINE [Suspect]
     Indication: PRODUCT USED FOR UNKNOWN INDICATION
     Route: 065
  2. SERTRALINE [Suspect]
     Indication: PRODUCT USED FOR UNKNOWN INDICATION
     Route: 065
  3. CLOZAPINE [Suspect]
     Indication: PRODUCT USED FOR UNKNOWN INDICATION
     Route: 065

REACTIONS (8)
  - ABDOMINAL DISTENSION [None]
  - ANTIPSYCHOTIC DRUG LEVEL INCREASED [None]
  - DRUG TOXICITY [None]
  - EPILEPSY [None]
  - GASTRIC DILATATION [None]
  - GASTROINTESTINAL HYPOMOTILITY [None]
  - PULMONARY CONGESTION [None]
  - PULMONARY OEDEMA [None]
